FAERS Safety Report 6346650-7 (Version None)
Quarter: 2009Q3

REPORT INFORMATION
  Report Type: 
  Country: None (occurrence: None)
  Receive Date: 20090903
  Receipt Date: 20090818
  Transmission Date: 20100115
  Serious: Yes (Other)
  Sender: FDA-Public Use
  Company Number: B0590585A

PATIENT
  Sex: 0

DRUGS (6)
  1. ZOVIRAX [Suspect]
     Indication: DRUG USE FOR UNKNOWN INDICATION
  2. RITONAVIR [Suspect]
     Indication: DRUG USE FOR UNKNOWN INDICATION
  3. SAQUINAVIR (FORMULATION UNKNOWN) (SAQUINAVIR) [Suspect]
     Indication: DRUG USE FOR UNKNOWN INDICATION
  4. STAVUDINE [Suspect]
     Indication: DRUG USE FOR UNKNOWN INDICATION
  5. SELENIUM SULFIDE [Suspect]
     Indication: DRUG USE FOR UNKNOWN INDICATION
  6. LISINOPRIL [Suspect]
     Indication: DRUG USE FOR UNKNOWN INDICATION

REACTIONS (2)
  - DRUG INTERACTION [None]
  - NEUROPATHY PERIPHERAL [None]
